FAERS Safety Report 5480174-4 (Version None)
Quarter: 2007Q4

REPORT INFORMATION
  Report Type: 
  Country: None (occurrence: None)
  Receive Date: 20071009
  Receipt Date: 20071003
  Transmission Date: 20080405
  Serious: Yes (Hospitalization, Other)
  Sender: FDA-Public Use
  Company Number: GB-BAYER-200715789GDS

PATIENT
  Age: 76 Year
  Sex: Male

DRUGS (1)
  1. ASPIRIN [Suspect]
     Indication: CEREBROVASCULAR DISORDER
     Route: 065

REACTIONS (2)
  - BENIGN GASTROINTESTINAL NEOPLASM [None]
  - COLON CANCER [None]
